FAERS Safety Report 16047844 (Version 3)
Quarter: 2019Q2

REPORT INFORMATION
  Report Type: Spontaneous
  Country: CA (occurrence: CA)
  Receive Date: 20190307
  Receipt Date: 20190521
  Transmission Date: 20190711
  Serious: Yes (Other)
  Sender: FDA-Public Use
  Company Number: CA-PFIZER INC-2019096231

PATIENT
  Age: 9 Year
  Sex: Female
  Weight: 27 kg

DRUGS (3)
  1. ATIVAN [Suspect]
     Active Substance: LORAZEPAM
     Indication: INSOMNIA
     Dosage: 0.25 TO 0.5 MG, DAILY AT BEDTIME
     Route: 048
     Dates: start: 20161222, end: 2017
  2. ATIVAN [Suspect]
     Active Substance: LORAZEPAM
     Indication: ANXIETY
  3. MELATONIN [Concomitant]
     Active Substance: MELATONIN
     Indication: SLEEP DISORDER

REACTIONS (8)
  - Suicidal ideation [Unknown]
  - Negative thoughts [Recovered/Resolved]
  - Product use issue [Unknown]
  - Depressed mood [Recovered/Resolved]
  - Personality change [Unknown]
  - Suicide attempt [Unknown]
  - Screaming [Recovered/Resolved]
  - Off label use [Unknown]

NARRATIVE: CASE EVENT DATE: 20161222
